FAERS Safety Report 4567883-6 (Version None)
Quarter: 2005Q1

REPORT INFORMATION
  Report Type: 
  Country: None (occurrence: None)
  Receive Date: 20050202
  Receipt Date: 20041213
  Transmission Date: 20050727
  Serious: No
  Sender: FDA-Public Use
  Company Number: US-GLAXOSMITHKLINE-A0537101A

PATIENT
  Age: 58 Year
  Sex: Female

DRUGS (7)
  1. AVANDAMET [Suspect]
     Route: 048
     Dates: start: 20041201, end: 20041209
  2. HUMALOG [Concomitant]
  3. DIOVAN [Concomitant]
  4. LANTUS [Concomitant]
  5. GARLIC PILLS [Concomitant]
  6. LOPRESSOR [Concomitant]
  7. NEXIUM [Concomitant]

REACTIONS (4)
  - ARTHRALGIA [None]
  - CHEST PAIN [None]
  - DIARRHOEA [None]
  - FATIGUE [None]
